FAERS Safety Report 9483573 (Version 1)
Quarter: 2013Q3

REPORT INFORMATION
  Report Type: Spontaneous
  Country: US (occurrence: US)
  Receive Date: 20130828
  Receipt Date: 20130828
  Transmission Date: 20140515
  Serious: No
  Sender: FDA-Public Use
  Company Number: US-009507513-1308USA013712

PATIENT
  Sex: 0

DRUGS (1)
  1. DULERA [Suspect]
     Indication: ASTHMA
     Dosage: 200 MCG/5MCG/ TWO PUFFS
     Route: 055

REACTIONS (1)
  - Muscle spasms [Unknown]
